FAERS Safety Report 7311990-1 (Version None)
Quarter: 2011Q1

REPORT INFORMATION
  Report Type: 
  Country: None (occurrence: None)
  Receive Date: 20110224
  Receipt Date: 20110216
  Transmission Date: 20110831
  Serious: Yes (Other)
  Sender: FDA-Public Use
  Company Number: US-PFIZER INC-2011034631

PATIENT
  Sex: Female
  Weight: 54.422 kg

DRUGS (2)
  1. ADVIL LIQUI-GELS [Suspect]
     Indication: PYREXIA
     Dosage: 2 TABLETS, ONE TIME DOSE
     Dates: start: 20110122
  2. TYLENOL EXTRA-STRENGTH [Suspect]
     Indication: PYREXIA
     Dosage: 1000 MG, EVERY 6 HOURS
     Route: 048
     Dates: start: 20110121

REACTIONS (6)
  - PRODUCT QUALITY ISSUE [None]
  - VOMITING [None]
  - ABDOMINAL PAIN UPPER [None]
  - HEPATIC PAIN [None]
  - PRESYNCOPE [None]
  - HEPATITIS [None]
